FAERS Safety Report 25482030 (Version 3)
Quarter: 2025Q4

REPORT INFORMATION
  Report Type: Report from Study
  Country: US (occurrence: US)
  Receive Date: 20250626
  Receipt Date: 20251014
  Transmission Date: 20260118
  Serious: Yes (Other)
  Sender: ABBVIE
  Company Number: US-ABBVIE-6258977

PATIENT
  Age: 46 Year
  Sex: Female

DRUGS (2)
  1. SKYRIZI [Suspect]
     Active Substance: RISANKIZUMAB-RZAA
     Indication: Psoriasis
     Route: 058
     Dates: start: 20250422, end: 20250730
  2. SKYRIZI [Suspect]
     Active Substance: RISANKIZUMAB-RZAA
     Route: 058

REACTIONS (6)
  - Squamous cell carcinoma of skin [Not Recovered/Not Resolved]
  - Skin cancer [Recovering/Resolving]
  - Abdominal pain [Not Recovered/Not Resolved]
  - Psoriasis [Unknown]
  - Rash pruritic [Unknown]
  - Purpura [Unknown]

NARRATIVE: CASE EVENT DATE: 20250101
